FAERS Safety Report 6653303-4 (Version None)
Quarter: 2010Q1

REPORT INFORMATION
  Report Type: 
  Country: None (occurrence: None)
  Receive Date: 20100326
  Receipt Date: 20100319
  Transmission Date: 20100710
  Serious: Yes (Other)
  Sender: FDA-Public Use
  Company Number: US-B.I. PHARMACEUTICALS,INC./RIDGEFIELD-2010-BP-03161PF

PATIENT
  Sex: Male
  Weight: 68 kg

DRUGS (12)
  1. SPIRIVA [Suspect]
     Indication: CHRONIC OBSTRUCTIVE PULMONARY DISEASE
     Dosage: 18 MCG
     Route: 055
     Dates: start: 20100201, end: 20100312
  2. CHANTIX [Suspect]
     Indication: SMOKING CESSATION THERAPY
     Dosage: 2 MG
     Route: 048
     Dates: start: 20100202, end: 20100301
  3. MEDROL [Suspect]
     Indication: RASH
     Route: 048
     Dates: start: 20100101
  4. ATENOLOL [Concomitant]
     Indication: HYPERTENSION
     Dosage: 25 MG
  5. MONOPRIL [Concomitant]
     Indication: HYPERTENSION
     Dosage: 40 MG
     Route: 048
  6. LYRICA [Concomitant]
     Indication: NEUROPATHY PERIPHERAL
     Dosage: 450 MG
     Route: 048
  7. LYRICA [Concomitant]
     Indication: FIBROMYALGIA
  8. ADVAIR DISKUS 100/50 [Concomitant]
     Indication: CHRONIC OBSTRUCTIVE PULMONARY DISEASE
     Dosage: 500 MCG
     Route: 055
  9. PROVENTIL [Concomitant]
     Indication: CHRONIC OBSTRUCTIVE PULMONARY DISEASE
     Route: 055
  10. CLONAZEPAM [Concomitant]
     Indication: ANXIETY
     Dosage: 3 MG
     Route: 048
  11. PRAVACHOL [Concomitant]
     Indication: BLOOD CHOLESTEROL INCREASED
     Dosage: 20 MG
     Route: 048
  12. TRAZODONE HCL [Concomitant]
     Route: 048

REACTIONS (7)
  - BLISTER [None]
  - DRUG INEFFECTIVE [None]
  - DYSPNOEA [None]
  - RASH GENERALISED [None]
  - SKIN EXFOLIATION [None]
  - SWOLLEN TONGUE [None]
  - URTICARIA [None]
